FAERS Safety Report 16022792 (Version 1)
Quarter: 2019Q1

REPORT INFORMATION
  Report Type: Spontaneous
  Country: US (occurrence: US)
  Receive Date: 20190301
  Receipt Date: 20190301
  Transmission Date: 20190418
  Serious: No
  Sender: FDA-Public Use
  Company Number: US-PFIZER INC-2019073015

PATIENT
  Age: 60 Year
  Sex: Female
  Weight: 53.61 kg

DRUGS (1)
  1. DOXEPIN HCL [Suspect]
     Active Substance: DOXEPIN HYDROCHLORIDE
     Dosage: 0.7 ML, 1X/DAY (AT NIGHTTIME)
     Route: 048

REACTIONS (4)
  - Personality disorder [Unknown]
  - Product dispensing error [Unknown]
  - Asthenia [Recovered/Resolved]
  - Weight increased [Unknown]

NARRATIVE: CASE EVENT DATE: 2019
